FAERS Safety Report 11860017 (Version 4)
Quarter: 2017Q1

REPORT INFORMATION
  Report Type: Report from Study
  Country: AU (occurrence: AU)
  Receive Date: 20151222
  Receipt Date: 20170321
  Transmission Date: 20170428
  Serious: Yes (Hospitalization)
  Sender: FDA-Public Use
  Company Number: AU-BIOGEN-2015BI00160820

PATIENT
  Age: 30 Year
  Sex: Female

DRUGS (2)
  1. TECFIDERA [Suspect]
     Active Substance: DIMETHYL FUMARATE
     Indication: MULTIPLE SCLEROSIS
     Dosage: AT NIGHT 4 DAYS A WEEK
     Route: 048
     Dates: start: 20140626
  2. TECFIDERA [Suspect]
     Active Substance: DIMETHYL FUMARATE
     Dosage: TWICE DAILY 3 DAYS A WEEK
     Route: 048
     Dates: end: 20170317

REACTIONS (9)
  - Neuralgia [Not Recovered/Not Resolved]
  - Mammoplasty [Unknown]
  - Multiple sclerosis relapse [Unknown]
  - Flushing [Unknown]
  - Underdose [Not Recovered/Not Resolved]
  - Back pain [Not Recovered/Not Resolved]
  - Hypersensitivity [Not Recovered/Not Resolved]
  - Fatigue [Not Recovered/Not Resolved]
  - Paraesthesia [Unknown]

NARRATIVE: CASE EVENT DATE: 201406
